FAERS Safety Report 13568501 (Version 2)
Quarter: 2017Q2

REPORT INFORMATION
  Report Type: Spontaneous
  Country: DK (occurrence: DK)
  Receive Date: 20170522
  Receipt Date: 20170522
  Transmission Date: 20170830
  Serious: Yes (Other)
  Sender: FDA-Public Use
  Company Number: DK-TEVA-767958ACC

PATIENT
  Sex: Female

DRUGS (15)
  1. VIBRADOX [Suspect]
     Active Substance: DOXYCYCLINE
     Indication: INFECTION
     Route: 048
  2. SPIRIVA [Concomitant]
     Active Substance: TIOTROPIUM BROMIDE MONOHYDRATE
     Indication: ASTHMA
     Route: 055
  3. PREDNISOLON [Concomitant]
     Active Substance: PREDNISOLONE
  4. FLUCONAZOL [Concomitant]
     Active Substance: FLUCONAZOLE
  5. TODOLAC [Concomitant]
     Active Substance: ETODOLAC
     Indication: PAIN
     Dosage: DOSIS: 300 MG VED BEHOV.
     Route: 048
  6. INNOVAIR [Concomitant]
     Active Substance: BECLOMETHASONE DIPROPIONATE\FORMOTEROL
     Indication: ASTHMA
     Route: 055
  7. IBUMETIN [Concomitant]
     Active Substance: IBUPROFEN
     Indication: PAIN
     Dosage: 1200 MILLIGRAM DAILY;
     Route: 048
  8. CIPROFLOXACIN. [Suspect]
     Active Substance: CIPROFLOXACIN
     Indication: INFECTION
     Dates: start: 20130415
  9. PAMOL [Concomitant]
     Active Substance: ACETAMINOPHEN
     Indication: PAIN
     Dosage: 3 GRAM DAILY;
  10. METOPROLOL TARTRATE. [Concomitant]
     Active Substance: METOPROLOL TARTRATE
     Route: 048
  11. SURLID [Suspect]
     Active Substance: ROXITHROMYCIN
     Indication: PNEUMONIA
     Route: 048
  12. SINGULAIR [Concomitant]
     Active Substance: MONTELUKAST SODIUM
     Indication: ASTHMA
  13. FEXOFENADINE [Concomitant]
     Active Substance: FEXOFENADINE\FEXOFENADINE HYDROCHLORIDE
     Indication: HYPERSENSITIVITY
     Route: 048
  14. VENLAFAXIN [Concomitant]
     Active Substance: VENLAFAXINE HYDROCHLORIDE
     Route: 048
  15. AZITHROMYCIN ^SANDOZ^ [Suspect]
     Active Substance: AZITHROMYCIN
     Indication: INFECTION
     Dosage: STYRKE: 500 MG.
     Route: 048

REACTIONS (17)
  - Dizziness [Unknown]
  - Headache [Unknown]
  - Diarrhoea [Unknown]
  - Vision blurred [Unknown]
  - Tremor [Unknown]
  - Swelling face [Unknown]
  - Peripheral coldness [Unknown]
  - Deafness [Unknown]
  - Rash [Unknown]
  - Tinnitus [Unknown]
  - Anaphylactic shock [Unknown]
  - Chills [Unknown]
  - Pharyngeal oedema [Unknown]
  - Abdominal pain [Unknown]
  - Nausea [Unknown]
  - Erythema [Unknown]
  - Pyrexia [Unknown]
